FAERS Safety Report 9396253 (Version 1)
Quarter: 2013Q3

REPORT INFORMATION
  Report Type: Spontaneous
  Country: BR (occurrence: BR)
  Receive Date: 20130711
  Receipt Date: 20130711
  Transmission Date: 20140515
  Serious: Yes (Other)
  Sender: FDA-Public Use
  Company Number: BR-PFIZER INC-2013203614

PATIENT
  Age: 40 Year
  Sex: Female
  Weight: 53 kg

DRUGS (5)
  1. EFEXOR XR [Suspect]
     Dosage: AT ONE TABLET OF 150 MG AT NIGHT OR AT ONE TABLET OF 75MG IN THE MORNING AND ONE TABLET OF 150MG
     Route: 048
     Dates: start: 20121114, end: 20130607
  2. EFEXOR XR [Suspect]
     Dosage: 75MG (UNSPECIFIED FREQUENCY)
     Route: 048
     Dates: start: 20130607, end: 20130707
  3. OLCADIL [Concomitant]
     Indication: ANXIETY
     Dosage: 0.5 TABLET IN THE MORNING AND 1 TABLET AT NIGHT
     Dates: start: 201211
  4. VALIUM [Concomitant]
     Indication: SLEEP DISORDER
     Dosage: 10 MG, AT NIGHT
     Dates: start: 201304
  5. FISTION [Concomitant]
     Indication: MEMORY IMPAIRMENT
     Dosage: 1 TABLET IN THE MORNING
     Dates: start: 201301, end: 201304

REACTIONS (9)
  - Epilepsy [Unknown]
  - Mental disorder [Unknown]
  - Agitation [Unknown]
  - Crying [Unknown]
  - Aggression [Unknown]
  - Restlessness [Unknown]
  - Insomnia [Unknown]
  - Aphonia [Unknown]
  - Headache [Unknown]
